FAERS Safety Report 24299676 (Version 2)
Quarter: 2024Q3

REPORT INFORMATION
  Report Type: Spontaneous
  Country: US (occurrence: US)
  Receive Date: 20240909
  Receipt Date: 20240923
  Transmission Date: 20241016
  Serious: Yes (Hospitalization, Other)
  Sender: SANOFI AVENTIS
  Company Number: US-SA-2024SA258845

PATIENT
  Age: 61 Year
  Sex: Female

DRUGS (1)
  1. DUPIXENT [Suspect]
     Active Substance: DUPILUMAB
     Indication: Dermatitis atopic
     Dosage: 300 MG, QOW
     Route: 058

REACTIONS (6)
  - Cardiac failure [Unknown]
  - Cardiac arrest [Unknown]
  - Postoperative wound infection [Unknown]
  - Cystitis [Unknown]
  - Musculoskeletal discomfort [Unknown]
  - Eczema [Unknown]

NARRATIVE: CASE EVENT DATE: 20240101
